FAERS Safety Report 8146315-5 (Version None)
Quarter: 2012Q1

REPORT INFORMATION
  Report Type: 
  Country: None (occurrence: None)
  Receive Date: 20120217
  Receipt Date: 20120208
  Transmission Date: 20120608
  Serious: Yes (Other)
  Sender: FDA-Public Use
  Company Number: JP-PFIZER INC-2012038366

PATIENT
  Age: 58 Year
  Sex: Female
  Weight: 57 kg

DRUGS (5)
  1. BROTIZOLAM [Concomitant]
     Dosage: 0.25 MG/DAY
     Route: 048
  2. ZOSYN [Suspect]
     Indication: PNEUMONIA
     Dosage: 4.5 G, 3X/DAY
     Route: 041
     Dates: start: 20110523, end: 20110525
  3. FAMOTIDINE [Concomitant]
     Dosage: 20 MG/DAY
     Route: 048
  4. PHENYTOIN SODIUM CAP [Concomitant]
     Indication: EPILEPSY
     Dosage: 300 MG/DAY
     Route: 048
  5. CARBOCAIN [Concomitant]
     Indication: PROPHYLAXIS
     Dosage: 50 MG/DAY
     Route: 041
     Dates: start: 20110524, end: 20110524

REACTIONS (1)
  - LOSS OF CONSCIOUSNESS [None]
